FAERS Safety Report 9784938 (Version 1)
Quarter: 2013Q4

REPORT INFORMATION
  Report Type: Spontaneous
  Country: US (occurrence: US)
  Receive Date: 20131227
  Receipt Date: 20131227
  Transmission Date: 20140711
  Serious: No
  Sender: FDA-Public Use
  Company Number: US-009507513-1312USA011012

PATIENT
  Sex: Male

DRUGS (1)
  1. PEGINTRON [Suspect]

REACTIONS (1)
  - White blood cell count decreased [Unknown]
